FAERS Safety Report 4301489-9 (Version None)
Quarter: 2004Q1

REPORT INFORMATION
  Report Type: 
  Country: None (occurrence: None)
  Receive Date: 20040219
  Receipt Date: 20040203
  Transmission Date: 20041129
  Serious: Yes (Hospitalization)
  Sender: FDA-Public Use
  Company Number: 192002

PATIENT
  Age: 27 Year
  Sex: Female
  Weight: 63.5036 kg

DRUGS (7)
  1. AVONEX [Suspect]
     Indication: MULTIPLE SCLEROSIS
     Dosage: 30 MCG QW IM
     Route: 030
     Dates: start: 20031224
  2. EFFEXOR [Concomitant]
  3. IBUPROFEN [Concomitant]
  4. FLEXERIL [Concomitant]
  5. DIAZEPAM [Concomitant]
  6. FENTANYL [Concomitant]
  7. MORPHINE [Concomitant]

REACTIONS (1)
  - DRUG TOXICITY [None]
